FAERS Safety Report 8882145 (Version 4)
Quarter: 2013Q1

REPORT INFORMATION
  Report Type: Report from Study
  Country: US (occurrence: US)
  Receive Date: 20121105
  Receipt Date: 20130130
  Transmission Date: 20140127
  Serious: Yes (Other)
  Sender: FDA-Public Use
  Company Number: US-BAYER-2012-112829

PATIENT
  Age: 72 Year
  Sex: Female

DRUGS (3)
  1. STIVARGA [Suspect]
     Indication: COLON CANCER
     Dosage: DAILY DOSE 160 MG (4 TABLETS)
     Route: 048
     Dates: start: 20121022, end: 20121107
  2. MORPHINE [Concomitant]
     Indication: PAIN
     Dosage: 30 MG UP TO 6X A DAY
     Dates: start: 20121108
  3. MORPHINE [Suspect]
     Indication: PAIN
     Dosage: 30 MG, BID
     Dates: start: 20121108

REACTIONS (11)
  - Fall [Recovered/Resolved]
  - Balance disorder [Recovering/Resolving]
  - Dysstasia [Recovering/Resolving]
  - Visual field defect [Not Recovered/Not Resolved]
  - Dizziness [Recovering/Resolving]
  - Abnormal sensation in eye [Not Recovered/Not Resolved]
  - Fatigue [Not Recovered/Not Resolved]
  - Dry mouth [Not Recovered/Not Resolved]
  - Hepatic function abnormal [Unknown]
  - Metastases to lung [None]
  - Decreased appetite [None]
